FAERS Safety Report 4983682-5 (Version None)
Quarter: 2006Q2

REPORT INFORMATION
  Report Type: 
  Country: None (occurrence: None)
  Receive Date: 20060425
  Receipt Date: 20060425
  Transmission Date: 20061013
  Serious: Yes (Death)
  Sender: FDA-Public Use
  Company Number: None

PATIENT
  Age: 63 Year
  Sex: Male

DRUGS (17)
  1. WARFARIN SODIUM [Suspect]
     Indication: ATRIAL FIBRILLATION
     Dosage: 7.5 DAILY EXCEPT 3.75 SAT AND SUNDAY
     Dates: start: 20051205
  2. TERAZOSIN HCL [Concomitant]
  3. OMEPRAZOLE [Concomitant]
  4. NIACIN [Concomitant]
  5. LISINOPRIL [Concomitant]
  6. BACTRIM [Concomitant]
  7. ATROVENT [Concomitant]
  8. INSULIN [Concomitant]
  9. COMBIVENT [Concomitant]
  10. SIMVASTATIN [Concomitant]
  11. ASPIRIN [Concomitant]
  12. CONAZEPAM [Concomitant]
  13. DIGOXIN [Concomitant]
  14. POTASSIUM CHLORIDE [Concomitant]
  15. DILTIAZEM [Concomitant]
  16. LASIX [Concomitant]
  17. GEMFIBROZIL [Concomitant]

REACTIONS (4)
  - ADVERSE DRUG REACTION [None]
  - FALL [None]
  - LOSS OF CONSCIOUSNESS [None]
  - SUBDURAL HAEMATOMA [None]
